FAERS Safety Report 8928661 (Version 1)
Quarter: 2012Q4

REPORT INFORMATION
  Report Type: Spontaneous
  Country: US (occurrence: None)
  Receive Date: 20121126
  Receipt Date: 20121126
  Transmission Date: 20130627
  Serious: Yes (Other)
  Sender: FDA-Public Use
  Company Number: None

PATIENT
  Age: 58 Year
  Sex: Female
  Weight: 64 kg

DRUGS (2)
  1. MOXIFLOXACIN [Suspect]
     Indication: ASTHMA
     Dosage: 400 mg QD IV DRIP
     Route: 041
     Dates: start: 20121116, end: 20121118
  2. MOXIFLOXACIN [Suspect]
     Indication: ALLERGIC RHINITIS
     Dosage: 400 mg QD IV DRIP
     Route: 041
     Dates: start: 20121116, end: 20121118

REACTIONS (4)
  - Arthralgia [None]
  - Arthritis [None]
  - Blood glucose increased [None]
  - Drug interaction [None]
